FAERS Safety Report 5706796-0 (Version None)
Quarter: 2008Q2

REPORT INFORMATION
  Report Type: 
  Country: None (occurrence: None)
  Receive Date: 20080415
  Receipt Date: 20080415
  Transmission Date: 20081010
  Serious: Yes (Death)
  Sender: FDA-Public Use
  Company Number: None

PATIENT
  Age: 39 Year
  Sex: Male
  Weight: 79.3795 kg

DRUGS (1)
  1. CYMBALTA [Suspect]
     Indication: GENERALISED ANXIETY DISORDER
     Dosage: 60MG ONCE A DAY PO
     Route: 048

REACTIONS (9)
  - ABNORMAL BEHAVIOUR [None]
  - ASPHYXIA [None]
  - CHILLS [None]
  - COMPLETED SUICIDE [None]
  - FEELING ABNORMAL [None]
  - HALLUCINATION, AUDITORY [None]
  - HYPERHIDROSIS [None]
  - SOMNOLENCE [None]
  - TRANCE [None]
